FAERS Safety Report 25297484 (Version 7)
Quarter: 2025Q3

REPORT INFORMATION
  Report Type: Spontaneous
  Country: US (occurrence: US)
  Receive Date: 20250511
  Receipt Date: 20250708
  Transmission Date: 20251021
  Serious: No
  Sender: KARYOPHARM THERAPEUTICS
  Company Number: US-KARYOPHARM-2025KPT100245

PATIENT

DRUGS (18)
  1. SELINEXOR [Suspect]
     Active Substance: SELINEXOR
     Indication: Plasma cell myeloma
     Route: 048
     Dates: start: 20250507, end: 202505
  2. SELINEXOR [Suspect]
     Active Substance: SELINEXOR
     Route: 048
     Dates: start: 2025, end: 2025
  3. SELINEXOR [Suspect]
     Active Substance: SELINEXOR
     Route: 048
     Dates: start: 20250507, end: 20250618
  4. ACYCLOVIR [Concomitant]
     Active Substance: ACYCLOVIR
  5. ALFUZOSIN [Concomitant]
     Active Substance: ALFUZOSIN
  6. ASPIRIN [Concomitant]
     Active Substance: ASPIRIN
  7. CELECOXIB [Concomitant]
     Active Substance: CELECOXIB
  8. GLYBURIDE [Concomitant]
     Active Substance: GLYBURIDE
  9. HYDROCHLOROTHIAZIDE [Concomitant]
     Active Substance: HYDROCHLOROTHIAZIDE
  10. HYDROCODONE [Concomitant]
     Active Substance: HYDROCODONE
  11. OLANZAPINE [Concomitant]
     Active Substance: OLANZAPINE
  12. PREGABALIN [Concomitant]
     Active Substance: PREGABALIN
  13. SULFACETAMIDE SODIUM [Concomitant]
     Active Substance: SULFACETAMIDE SODIUM
  14. WARFARIN [Concomitant]
     Active Substance: WARFARIN
  15. PRIMIDONE [Concomitant]
     Active Substance: PRIMIDONE
  16. PROPRANOLOL [Concomitant]
     Active Substance: PROPRANOLOL HYDROCHLORIDE
  17. BACTRIM [Concomitant]
     Active Substance: SULFAMETHOXAZOLE\TRIMETHOPRIM
  18. SULFAMETHOXAZOLE AND TRIMETHOPRIM [Concomitant]
     Active Substance: SULFAMETHOXAZOLE\TRIMETHOPRIM

REACTIONS (17)
  - Nightmare [Unknown]
  - Malaise [Unknown]
  - Balance disorder [Not Recovered/Not Resolved]
  - Headache [Not Recovered/Not Resolved]
  - Insomnia [Unknown]
  - Dysentery [Unknown]
  - Retching [Unknown]
  - Ill-defined disorder [Unknown]
  - Blood glucose abnormal [Unknown]
  - Loss of personal independence in daily activities [Unknown]
  - Drug intolerance [Unknown]
  - Nausea [Recovered/Resolved]
  - Constipation [Not Recovered/Not Resolved]
  - Asthenia [Unknown]
  - Vomiting [Recovered/Resolved]
  - Diarrhoea [Unknown]
  - Fatigue [Not Recovered/Not Resolved]

NARRATIVE: CASE EVENT DATE: 20250101
